FAERS Safety Report 8277536-9 (Version None)
Quarter: 2012Q2

REPORT INFORMATION
  Report Type: 
  Country: None (occurrence: None)
  Receive Date: 20120412
  Receipt Date: 20120404
  Transmission Date: 20120825
  Serious: Yes (Hospitalization)
  Sender: FDA-Public Use
  Company Number: FR-MERCK-1204USA00893

PATIENT
  Age: 80 Year
  Sex: Male

DRUGS (20)
  1. INVANZ [Suspect]
     Indication: INFECTION
     Route: 030
     Dates: start: 20111226, end: 20120116
  2. CLOPIDOGREL [Concomitant]
     Route: 065
  3. POLYETHYLENE GLYCOL [Concomitant]
     Indication: CONSTIPATION
     Dosage: ONE SACHET
     Route: 065
  4. FUROSEMIDE [Concomitant]
     Route: 065
  5. ASPIRIN [Concomitant]
     Route: 048
  6. AMLODIPINE [Concomitant]
     Route: 065
  7. LANTUS [Concomitant]
     Route: 065
     Dates: start: 20110601, end: 20120209
  8. HUMALOG [Concomitant]
     Route: 065
     Dates: start: 20110601, end: 20120209
  9. PRAVASTATIN SODIUM [Suspect]
     Indication: DYSLIPIDAEMIA
     Route: 048
     Dates: start: 20111224
  10. OXYCODONE HCL [Concomitant]
     Indication: PAIN
     Route: 065
  11. IMOVANE [Concomitant]
     Dosage: 1 DOSAGE FORM
     Route: 065
  12. NEXIUM [Concomitant]
     Route: 065
     Dates: start: 20110701
  13. MAG 2 [Suspect]
     Indication: MINERAL SUPPLEMENTATION
     Route: 048
     Dates: start: 20111224, end: 20120106
  14. ACETAMINOPHEN [Concomitant]
     Indication: PAIN
     Route: 065
  15. NITRODERM [Concomitant]
     Dosage: 1 PATCH
     Route: 065
  16. DIAMICRON [Suspect]
     Indication: TYPE 2 DIABETES MELLITUS
     Dosage: INCREASED
     Route: 048
     Dates: start: 20120109
  17. ARANESP [Suspect]
     Indication: ANAEMIA
     Route: 058
     Dates: start: 20111025, end: 20120116
  18. EPOETIN [Concomitant]
     Indication: ANAEMIA
     Dosage: 1 VIAL EVEY 15 DAYS
     Route: 065
     Dates: start: 20110601, end: 20120101
  19. PERINDOPRIL [Concomitant]
     Route: 065
  20. VITAMIN D [Concomitant]
     Dosage: ONE VIAL EVERY 15 DAYS
     Route: 065

REACTIONS (1)
  - PANCYTOPENIA [None]
